FAERS Safety Report 5237324-4 (Version None)
Quarter: 2007Q1

REPORT INFORMATION
  Report Type: 
  Country: None (occurrence: None)
  Receive Date: 20070213
  Receipt Date: 20070208
  Transmission Date: 20070707
  Serious: Yes (Life-Threatening, Hospitalization)
  Sender: FDA-Public Use
  Company Number: GB-SANOFI-SYNTHELABO-D01200700022

PATIENT
  Sex: Male
  Weight: 87.1 kg

DRUGS (13)
  1. GAVISCON [Concomitant]
  2. METOCLOPRAMIDE [Concomitant]
     Dosage: 10-20 MG TDS, X3 DAYS POST CHEMO.
  3. IMODIUM [Concomitant]
  4. OXALIPLATIN [Suspect]
     Route: 042
     Dates: start: 20061221, end: 20061221
  5. ONDANSETRON [Concomitant]
     Dosage: 8 MG POST CHEMO
  6. DEXAMETHASONE [Concomitant]
     Dosage: 2 MG TDS, X3 DAYS POST CHEMO
  7. SLOW-K [Concomitant]
     Dates: start: 20061122, end: 20061206
  8. PARACETAMOL [Concomitant]
  9. ACYCLOVIR [Concomitant]
  10. LEUCOVORIN CALCIUM [Suspect]
     Route: 042
     Dates: start: 20061221, end: 20061221
  11. RAMIPRIL [Concomitant]
  12. FLUOROURACIL [Suspect]
     Dosage: 400 MG/M?, IV BOLUS D1+D2 FOLLOWED BY 5-FU 2400 MG/M? OVER 46-HOUR CONTINUOUS INFUSION.
     Route: 042
     Dates: start: 20061221, end: 20061223
  13. SR57746 [Suspect]
     Indication: NEUROLOGICAL SYMPTOM
     Route: 048
     Dates: start: 20060913, end: 20061229

REACTIONS (1)
  - PULMONARY EMBOLISM [None]
